FAERS Safety Report 15781762 (Version 1)
Quarter: 2018Q4

REPORT INFORMATION
  Report Type: Spontaneous
  Country: IN (occurrence: IN)
  Receive Date: 20181231
  Receipt Date: 20181231
  Transmission Date: 20190205
  Serious: Yes (Other)
  Sender: FDA-Public Use
  Company Number: None

PATIENT
  Age: 27 Year
  Sex: Female
  Weight: 65 kg

DRUGS (2)
  1. GLUTATHIONE IV 600MG [Suspect]
     Active Substance: GLUTATHIONE
     Route: 042
     Dates: start: 20181213, end: 20181228
  2. VITAMIN C [Suspect]
     Active Substance: ASCORBIC ACID

REACTIONS (3)
  - Breast pain [None]
  - Emotional distress [None]
  - Therapeutic product ineffective [None]

NARRATIVE: CASE EVENT DATE: 20181228
